FAERS Safety Report 23101335 (Version 1)
Quarter: 2023Q4

REPORT INFORMATION
  Report Type: Spontaneous
  Country: DE (occurrence: None)
  Receive Date: 20231024
  Receipt Date: 20231024
  Transmission Date: 20240110
  Serious: Yes (Other)
  Sender: FDA-Public Use
  Company Number: 2023A239461

PATIENT
  Age: 82 Year
  Sex: Male

DRUGS (8)
  1. DAPAGLIFLOZIN [Suspect]
     Active Substance: DAPAGLIFLOZIN
     Route: 048
     Dates: start: 202202
  2. INSULIN NOS [Concomitant]
     Active Substance: INSULIN NOS
  3. SITAGLIPTIN [Concomitant]
     Active Substance: SITAGLIPTIN
  4. ALLOPURINOL [Concomitant]
     Active Substance: ALLOPURINOL
  5. EDOXABAN [Concomitant]
     Active Substance: EDOXABAN
  6. OMEPRAZOLE [Concomitant]
     Active Substance: OMEPRAZOLE
  7. ATORVASTATIN [Concomitant]
     Active Substance: ATORVASTATIN
  8. TORSEMIDE [Concomitant]
     Active Substance: TORSEMIDE

REACTIONS (3)
  - Hypotension [Unknown]
  - Atrial fibrillation [Unknown]
  - Pleural effusion [Unknown]
